FAERS Safety Report 10268136 (Version 1)
Quarter: 2014Q2

REPORT INFORMATION
  Report Type: Report from Study
  Country: US (occurrence: US)
  Receive Date: 20140630
  Receipt Date: 20140630
  Transmission Date: 20141212
  Serious: Yes (Hospitalization)
  Sender: FDA-Public Use
  Company Number: US-ACTELION-A-NJ2014-100787

PATIENT
  Age: 70 Year
  Sex: Female

DRUGS (4)
  1. MACITENTAN [Suspect]
     Indication: COR PULMONALE CHRONIC
     Dosage: 10 NG, UNK
     Route: 048
     Dates: start: 20140522
  2. REVATIO [Concomitant]
  3. REMODULIN [Concomitant]
  4. WARFARIN [Concomitant]

REACTIONS (5)
  - Gastrointestinal haemorrhage [Unknown]
  - Pneumonia [Unknown]
  - Dyspnoea [Not Recovered/Not Resolved]
  - Full blood count decreased [Unknown]
  - Malaise [Unknown]
